FAERS Safety Report 9350698 (Version 3)
Quarter: 2013Q2

REPORT INFORMATION
  Report Type: Report from Study
  Country: TN (occurrence: TN)
  Receive Date: 20130617
  Receipt Date: 20130627
  Transmission Date: 20140414
  Serious: Yes (Death, Life-Threatening, Hospitalization)
  Sender: FDA-Public Use
  Company Number: PHHO2013TN007913

PATIENT
  Age: 44 Year
  Sex: Male
  Weight: 40 kg

DRUGS (1)
  1. EVEROLIMUS [Suspect]
     Indication: METASTATIC RENAL CELL CARCINOMA
     Dosage: 10 MG, QD
     Route: 048
     Dates: start: 20110328, end: 20130614

REACTIONS (3)
  - Death [Fatal]
  - Colonic fistula [Not Recovered/Not Resolved]
  - Renal mass [Not Recovered/Not Resolved]
